FAERS Safety Report 15304677 (Version 1)
Quarter: 2018Q3

REPORT INFORMATION
  Report Type: Spontaneous
  Country: HU (occurrence: HU)
  Receive Date: 20180821
  Receipt Date: 20180821
  Transmission Date: 20181010
  Serious: Yes (Hospitalization, Other)
  Sender: FDA-Public Use
  Company Number: PHHY2018HU076344

PATIENT
  Sex: Female

DRUGS (2)
  1. IRBESARTAN+HYDROCHLOROTHIAZIDE SANDOZ [Suspect]
     Active Substance: HYDROCHLOROTHIAZIDE\IRBESARTAN
     Indication: PRODUCT USED FOR UNKNOWN INDICATION
     Dosage: UNK
     Route: 065
     Dates: start: 2003, end: 201801
  2. METOPROLOL. [Suspect]
     Active Substance: METOPROLOL
     Indication: PRODUCT USED FOR UNKNOWN INDICATION
     Dosage: UNK
     Route: 065

REACTIONS (7)
  - Pain [Unknown]
  - Blood pressure decreased [Not Recovered/Not Resolved]
  - Syncope [Unknown]
  - Rickets [Unknown]
  - Balance disorder [Not Recovered/Not Resolved]
  - Thyroid cancer [Unknown]
  - Fall [Unknown]

NARRATIVE: CASE EVENT DATE: 2018
